FAERS Safety Report 23558608 (Version 1)
Quarter: 2024Q1

REPORT INFORMATION
  Report Type: Spontaneous
  Country: US (occurrence: US)
  Receive Date: 20240223
  Receipt Date: 20240223
  Transmission Date: 20240410
  Serious: Yes (Hospitalization)
  Sender: FDA-Public Use
  Company Number: US-MYLANLABS-2024M1016120

PATIENT
  Age: 35 Year
  Sex: Male

DRUGS (2)
  1. PERPHENAZINE [Suspect]
     Active Substance: PERPHENAZINE
     Indication: Schizophrenia
     Dosage: LONG-ACTING INJECTABLE, INJECTION
     Route: 065
  2. PALIPERIDONE [Suspect]
     Active Substance: PALIPERIDONE
     Indication: Schizophrenia
     Dosage: LONG-ACTING INJECTABLE, INJECTION
     Route: 065

REACTIONS (1)
  - Drug ineffective [Unknown]
